FAERS Safety Report 19503951 (Version 1)
Quarter: 2021Q3

REPORT INFORMATION
  Report Type: Spontaneous
  Country: NO (occurrence: NO)
  Receive Date: 20210707
  Receipt Date: 20210707
  Transmission Date: 20211014
  Serious: Yes (Life-Threatening)
  Sender: FDA-Public Use
  Company Number: NO-TEVA-2021-NO-1927956

PATIENT
  Age: 39 Year
  Sex: Female

DRUGS (5)
  1. FENTANYL. [Suspect]
     Active Substance: FENTANYL
     Indication: ANAESTHESIA PROCEDURE
     Dosage: 100 MICROGRAMS + 100 MICROGRAMS
     Route: 042
     Dates: start: 20210606, end: 20210606
  2. ESMERON [Suspect]
     Active Substance: ROCURONIUM BROMIDE
     Indication: ANAESTHESIA PROCEDURE
     Dosage: 50MG
     Route: 042
     Dates: start: 20210606, end: 20210606
  3. PROPOFOL. [Suspect]
     Active Substance: PROPOFOL
     Indication: ANAESTHESIA PROCEDURE
     Dosage: INCREASING DOSAGE, 200MG
     Route: 042
     Dates: start: 20210606, end: 20210606
  4. REMIFENTANIL [Suspect]
     Active Substance: REMIFENTANIL
     Indication: ANAESTHESIA PROCEDURE
     Dosage: ADMINISTERED AS TARGET CONTROL INFUSION (TCI) INCREASING UP TO 5 TCI
     Route: 042
     Dates: start: 20210606, end: 20210606
  5. ESKETAMINE [Suspect]
     Active Substance: ESKETAMINE
     Indication: ANAESTHESIA PROCEDURE
     Dosage: 37.5MG
     Route: 042
     Dates: start: 20210606, end: 20210606

REACTIONS (3)
  - Blood pressure decreased [Recovered/Resolved with Sequelae]
  - Oxygen saturation decreased [Recovered/Resolved with Sequelae]
  - Anaphylactic reaction [Recovered/Resolved with Sequelae]

NARRATIVE: CASE EVENT DATE: 20210606
